FAERS Safety Report 19767946 (Version 1)
Quarter: 2021Q3

REPORT INFORMATION
  Report Type: Spontaneous
  Country: GR (occurrence: GR)
  Receive Date: 20210831
  Receipt Date: 20210831
  Transmission Date: 20211014
  Serious: Yes (Other)
  Sender: FDA-Public Use
  Company Number: GR-AMGEN-GRCSP2021130408

PATIENT

DRUGS (2)
  1. APREMILAST [Suspect]
     Active Substance: APREMILAST
     Indication: PSORIATIC ARTHROPATHY
     Dosage: UNK
     Route: 065
  2. APREMILAST [Suspect]
     Active Substance: APREMILAST
     Indication: PSORIASIS

REACTIONS (9)
  - Loss of personal independence in daily activities [Unknown]
  - Discomfort [Unknown]
  - Depression [Unknown]
  - Quality of life decreased [Unknown]
  - Anxiety [Unknown]
  - Mobility decreased [Unknown]
  - Pain [Unknown]
  - Psoriatic arthropathy [Unknown]
  - Impaired self-care [Unknown]
